FAERS Safety Report 25581378 (Version 1)
Quarter: 2025Q3

REPORT INFORMATION
  Report Type: Spontaneous
  Country: US (occurrence: US)
  Receive Date: 20250718
  Receipt Date: 20250718
  Transmission Date: 20251020
  Serious: No
  Sender: NOVO NORDISK
  Company Number: US-NOVOPROD-1376775

PATIENT
  Age: 60 Year
  Sex: Female

DRUGS (7)
  1. WEGOVY [Suspect]
     Active Substance: SEMAGLUTIDE
     Indication: Weight control
  2. WEGOVY [Suspect]
     Active Substance: SEMAGLUTIDE
  3. WEGOVY [Suspect]
     Active Substance: SEMAGLUTIDE
  4. WEGOVY [Suspect]
     Active Substance: SEMAGLUTIDE
  5. WEGOVY [Suspect]
     Active Substance: SEMAGLUTIDE
  6. WEGOVY [Suspect]
     Active Substance: SEMAGLUTIDE
  7. WEGOVY [Suspect]
     Active Substance: SEMAGLUTIDE

REACTIONS (7)
  - Muscle spasms [Recovered/Resolved]
  - Nausea [Recovering/Resolving]
  - Diarrhoea [Recovered/Resolved]
  - Vomiting [Recovered/Resolved]
  - Constipation [Not Recovered/Not Resolved]
  - Off label use [Unknown]
  - Off label use [Unknown]

NARRATIVE: CASE EVENT DATE: 20241110
